FAERS Safety Report 6600121-9 (Version None)
Quarter: 2010Q1

REPORT INFORMATION
  Report Type: 
  Country: None (occurrence: None)
  Receive Date: 20100224
  Receipt Date: 20100217
  Transmission Date: 20100710
  Serious: Yes (Other)
  Sender: FDA-Public Use
  Company Number: GXKR2010JP01940

PATIENT
  Age: 14 Year
  Sex: Female

DRUGS (6)
  1. TACROLIMUS (NGX) [Suspect]
     Indication: IMMUNOSUPPRESSION
     Route: 065
  2. TACROLIMUS (NGX) [Suspect]
     Dosage: TARGET CONCENTRATION 10 NG/ML
     Route: 065
  3. TACROLIMUS (NGX) [Suspect]
     Dosage: TARGET CONCENTRATION 11 TO 13 NG/ML
     Route: 065
  4. METHYLPREDNISOLONE [Suspect]
     Indication: HEART TRANSPLANT REJECTION
     Dosage: PULSE THERAPY, 4 TIMES
     Route: 065
  5. PREDNISOLONE [Suspect]
     Indication: IMMUNOSUPPRESSION
     Route: 065
  6. MYCOPHENOLATE MOFETIL [Concomitant]
     Indication: IMMUNOSUPPRESSION
     Route: 065

REACTIONS (3)
  - DIASTOLIC DYSFUNCTION [None]
  - HEART TRANSPLANT REJECTION [None]
  - HYPERTROPHIC CARDIOMYOPATHY [None]
